FAERS Safety Report 6592767-1 (Version None)
Quarter: 2010Q1

REPORT INFORMATION
  Report Type: 
  Country: None (occurrence: None)
  Receive Date: 20100212
  Receipt Date: 20100205
  Transmission Date: 20100710
  Serious: Yes (Other)
  Sender: FDA-Public Use
  Company Number: 002514

PATIENT
  Sex: Female
  Weight: 63.5 kg

DRUGS (8)
  1. OMEPRAZOLE [Suspect]
     Indication: DYSPEPSIA
     Dosage: 20 MG QD ORAL
     Route: 048
     Dates: start: 20091015, end: 20091001
  2. OMEPRAZOLE [Suspect]
     Indication: GASTRIC DISORDER
     Dosage: 20 MG QD ORAL
     Route: 048
     Dates: start: 20091015, end: 20091001
  3. LEVOTHYROXINE [Concomitant]
  4. UROXATRAL [Concomitant]
  5. VITAMIN B COMPLEX CAP [Concomitant]
  6. VITAMIN C [Concomitant]
  7. VITAMIN E [Concomitant]
  8. TYLENOL-500 [Concomitant]

REACTIONS (5)
  - ABDOMINAL DISCOMFORT [None]
  - CAPSULE ISSUE [None]
  - NAUSEA [None]
  - THROAT TIGHTNESS [None]
  - THYROID NEOPLASM [None]
